FAERS Safety Report 11212169 (Version 1)
Quarter: 2015Q2

REPORT INFORMATION
  Report Type: Spontaneous
  Country: US (occurrence: None)
  Receive Date: 20150622
  Receipt Date: 20150622
  Transmission Date: 20150821
  Serious: Yes (Hospitalization)
  Sender: FDA-Public Use
  Company Number: None

PATIENT
  Age: 72 Year
  Sex: Male
  Weight: 70.7 kg

DRUGS (3)
  1. DONEPEZIL [Concomitant]
     Active Substance: DONEPEZIL
  2. AMANTADINE [Concomitant]
     Active Substance: AMANTADINE
  3. IBRUTINIB [Suspect]
     Active Substance: IBRUTINIB
     Indication: CHRONIC LYMPHOCYTIC LEUKAEMIA
     Route: 048
     Dates: start: 20150420, end: 20150603

REACTIONS (3)
  - Agitation [None]
  - Aggression [None]
  - Confusional state [None]

NARRATIVE: CASE EVENT DATE: 20150515
